FAERS Safety Report 22233886 (Version 1)
Quarter: 2023Q2

REPORT INFORMATION
  Report Type: Spontaneous
  Country: US (occurrence: None)
  Receive Date: 20230418
  Receipt Date: 20230418
  Transmission Date: 20230721
  Serious: No
  Sender: FDA-Public Use
  Company Number: None

PATIENT
  Age: 83 Year
  Sex: Female
  Weight: 54.43 kg

DRUGS (8)
  1. SUNITINIB [Suspect]
     Active Substance: SUNITINIB
     Indication: Malignant connective tissue neoplasm
     Dosage: FREQUENCY : DAILY;?
     Route: 048
  2. CEPHALEXIN [Concomitant]
     Active Substance: CEPHALEXIN
  3. ONDANSETRON [Concomitant]
     Active Substance: ONDANSETRON
  4. PROCHLORPERAZINE [Concomitant]
     Active Substance: PROCHLORPERAZINE
  5. FEXOFENADINE [Concomitant]
     Active Substance: FEXOFENADINE HYDROCHLORIDE
  6. SUTENT [Concomitant]
     Active Substance: SUNITINIB MALATE
  7. IBUPROFEN [Concomitant]
     Active Substance: IBUPROFEN
  8. VENLFAXINE [Concomitant]

REACTIONS (2)
  - Drug ineffective [None]
  - Therapy cessation [None]
